FAERS Safety Report 7396764-8 (Version None)
Quarter: 2011Q1

REPORT INFORMATION
  Report Type: 
  Country: None (occurrence: None)
  Receive Date: 20110331
  Receipt Date: 20110331
  Transmission Date: 20110831
  Serious: Yes (Other)
  Sender: FDA-Public Use
  Company Number: None

PATIENT
  Age: 62 Year
  Sex: Female
  Weight: 68.0396 kg

DRUGS (9)
  1. PLAQUENIL [Concomitant]
  2. METHOTREXATE [Concomitant]
  3. CHONDROITIN [Concomitant]
  4. ANTIVEERT [Concomitant]
  5. CALCIUM [Concomitant]
  6. PREDNISONE [Concomitant]
  7. ASPIRIN [Concomitant]
  8. FOSAMAX [Concomitant]
  9. ALENDRONATE SODIUM [Suspect]
     Indication: OSTEOPOROSIS
     Dosage: 70 MG ONCE A WEEK PO
     Route: 048
     Dates: start: 20110117, end: 20110321

REACTIONS (2)
  - ARTHRALGIA [None]
  - NAUSEA [None]
